FAERS Safety Report 17963306 (Version 1)
Quarter: 2020Q2

REPORT INFORMATION
  Report Type: Spontaneous
  Country: US (occurrence: US)
  Receive Date: 20200630
  Receipt Date: 20200630
  Transmission Date: 20200714
  Serious: Yes (Hospitalization)
  Sender: FDA-Public Use
  Company Number: US-ROCHE-2633564

PATIENT
  Sex: Female

DRUGS (13)
  1. REMODULIN [Concomitant]
     Active Substance: TREPROSTINIL
  2. ALLOPURINOL. [Concomitant]
     Active Substance: ALLOPURINOL
  3. GABAPENTIN. [Concomitant]
     Active Substance: GABAPENTIN
  4. ORENITRAM [Concomitant]
     Active Substance: TREPROSTINIL
  5. BUMEX [Concomitant]
     Active Substance: BUMETANIDE
  6. SILDENAFIL. [Concomitant]
     Active Substance: SILDENAFIL
  7. RITUXAN [Suspect]
     Active Substance: RITUXIMAB
     Indication: POLYARTHRITIS
     Dosage: ONGOING : YES; STRENGTH: 500MG/50ML
     Route: 042
     Dates: start: 20200629
  8. BETHANECHOL [Concomitant]
     Active Substance: BETHANECHOL
  9. LOSARTAN POTASSIUM. [Concomitant]
     Active Substance: LOSARTAN POTASSIUM
  10. PANTOPRAZOLE [Concomitant]
     Active Substance: PANTOPRAZOLE
  11. SPIRONOLACTONE. [Concomitant]
     Active Substance: SPIRONOLACTONE
  12. LEVOTHYROXINE. [Concomitant]
     Active Substance: LEVOTHYROXINE
  13. OPSUMIT [Concomitant]
     Active Substance: MACITENTAN

REACTIONS (1)
  - Fluid retention [Unknown]
